FAERS Safety Report 6661438-5 (Version None)
Quarter: 2010Q1

REPORT INFORMATION
  Report Type: 
  Country: None (occurrence: None)
  Receive Date: 20100331
  Receipt Date: 20100322
  Transmission Date: 20100710
  Serious: Yes (Hospitalization, Disabling)
  Sender: FDA-Public Use
  Company Number: US-MERCK-0911USA03513

PATIENT
  Age: 62 Year
  Sex: Female
  Weight: 74 kg

DRUGS (3)
  1. FOSAMAX [Suspect]
     Indication: OSTEOPENIA
     Route: 048
     Dates: start: 20030801, end: 20090501
  2. FOSAMAX [Suspect]
     Route: 048
     Dates: start: 20030801, end: 20080201
  3. ALENDRONATE SODIUM [Suspect]
     Indication: OSTEOPENIA
     Route: 048
     Dates: start: 20080401, end: 20090401

REACTIONS (20)
  - ANAEMIA POSTOPERATIVE [None]
  - ARTHRALGIA [None]
  - BURSITIS [None]
  - CATARACT [None]
  - DEPRESSIVE SYMPTOM [None]
  - DEVICE FAILURE [None]
  - FATIGUE [None]
  - FEMUR FRACTURE [None]
  - FRACTURE NONUNION [None]
  - HAEMORRHAGIC ANAEMIA [None]
  - HYPERLIPIDAEMIA [None]
  - HYPOTHYROIDISM [None]
  - LOW TURNOVER OSTEOPATHY [None]
  - MAJOR DEPRESSION [None]
  - OSTEOPOROSIS [None]
  - PROCEDURAL HYPERTENSION [None]
  - RESTLESS LEGS SYNDROME [None]
  - STRESS FRACTURE [None]
  - SUPRAVENTRICULAR TACHYCARDIA [None]
  - TACHYCARDIA [None]
